FAERS Safety Report 9846242 (Version 1)
Quarter: 2014Q1

REPORT INFORMATION
  Report Type: Report from Study
  Country: NL (occurrence: NL)
  Receive Date: 20140127
  Receipt Date: 20140127
  Transmission Date: 20141002
  Serious: Yes (Other)
  Sender: FDA-Public Use
  Company Number: PHHY2014NL007759

PATIENT
  Age: 55 Year
  Sex: Male

DRUGS (3)
  1. ZOMETA [Suspect]
     Indication: TRANSITIONAL CELL CARCINOMA
     Dosage: 4 MG, PER 100 ML; PER 4 WEEKS
     Route: 042
  2. ZOMETA [Suspect]
     Dosage: 4 MG, PER 100 ML; PER 4 WEEKS
     Route: 042
     Dates: start: 20131031
  3. ZOMETA [Suspect]
     Dosage: 4 MG, PER 100 ML; PER 4 WEEKS
     Route: 042
     Dates: start: 20131223

REACTIONS (4)
  - General physical health deterioration [Unknown]
  - Metastases to central nervous system [Unknown]
  - Asthenia [Not Recovered/Not Resolved]
  - Headache [Not Recovered/Not Resolved]
